FAERS Safety Report 8402298-1 (Version None)
Quarter: 2012Q2

REPORT INFORMATION
  Report Type: 
  Country: None (occurrence: None)
  Receive Date: 20120601
  Receipt Date: 20120522
  Transmission Date: 20120825
  Serious: Yes (Hospitalization)
  Sender: FDA-Public Use
  Company Number: GB-BRISTOL-MYERS SQUIBB COMPANY-16471575

PATIENT
  Age: 65 Year
  Sex: Male
  Weight: 61 kg

DRUGS (14)
  1. LANSOPRAZOLE [Concomitant]
     Route: 048
     Dates: start: 20030619
  2. ACETAMINOPHEN [Concomitant]
     Route: 048
     Dates: start: 20111213
  3. ENOXAPARIN SODIUM [Concomitant]
     Route: 058
     Dates: start: 20120320
  4. FORTISIP [Concomitant]
     Dosage: 1 DF : 2 CARTON
     Route: 048
     Dates: start: 20120321, end: 20120518
  5. FENTANYL-100 [Concomitant]
     Route: 003
     Dates: start: 20120330, end: 20120518
  6. IPILIMUMAB [Suspect]
     Indication: SMALL CELL LUNG CANCER STAGE UNSPECIFIED
     Dosage: RECENT DOSE:2MAR2012
     Dates: start: 20120302
  7. ACETAMINOPHEN AND CODEINE PHOSPHATE [Concomitant]
     Dosage: 30MG/500 MG X 4-8
     Route: 048
     Dates: start: 20111130, end: 20120518
  8. CARBOPLATIN [Suspect]
     Indication: SMALL CELL LUNG CANCER STAGE UNSPECIFIED
     Dosage: RECENT DOSE:2MAR2012
     Dates: start: 20111223
  9. METFORMIN HCL [Concomitant]
     Route: 048
     Dates: start: 20000922, end: 20120518
  10. ASPIRIN [Concomitant]
     Route: 048
     Dates: start: 19980731
  11. LOPERAMIDE [Concomitant]
     Route: 048
     Dates: start: 20120207
  12. ETOPOSIDE [Suspect]
     Indication: SMALL CELL LUNG CANCER STAGE UNSPECIFIED
     Dosage: RECENT DOSE:4MAR2012
     Dates: start: 20111223
  13. SIMVASTATIN [Concomitant]
     Route: 048
     Dates: start: 20051020, end: 20120518
  14. ZIMOVANE [Concomitant]
     Route: 048
     Dates: start: 20120216

REACTIONS (2)
  - MUSCULAR WEAKNESS [None]
  - PULMONARY EMBOLISM [None]
